FAERS Safety Report 9797794 (Version 2)
Quarter: 2014Q1

REPORT INFORMATION
  Report Type: Spontaneous
  Country: US (occurrence: US)
  Receive Date: 20140106
  Receipt Date: 20140306
  Transmission Date: 20141002
  Serious: No
  Sender: FDA-Public Use
  Company Number: US-B.I. PHARMACEUTICALS,INC./RIDGEFIELD-2013-BI-43989BP

PATIENT
  Age: 63 Year
  Sex: Female
  Weight: 99 kg

DRUGS (2)
  1. SPIRIVA [Suspect]
     Indication: CHRONIC OBSTRUCTIVE PULMONARY DISEASE
     Dosage: 18 MCG
     Route: 055
     Dates: start: 2009
  2. OVER THE COUNTER PRODUCT [Concomitant]
     Indication: DIARRHOEA
     Route: 048

REACTIONS (3)
  - Dyspnoea [Unknown]
  - Product quality issue [Recovered/Resolved]
  - Product quality issue [Unknown]
